FAERS Safety Report 13477025 (Version 1)
Quarter: 2017Q2

REPORT INFORMATION
  Report Type: Report from Study
  Country: JP (occurrence: JP)
  Receive Date: 20170425
  Receipt Date: 20170425
  Transmission Date: 20170830
  Serious: Yes (Hospitalization, Other)
  Sender: FDA-Public Use
  Company Number: JP-ACTELION-A-CH2017-151824

PATIENT
  Age: 32 Year
  Sex: Female
  Weight: 68.4 kg

DRUGS (11)
  1. OPSUMIT [Suspect]
     Active Substance: MACITENTAN
     Indication: PULMONARY ARTERIAL HYPERTENSION
     Dosage: 10 MG, OD
     Route: 048
     Dates: start: 20160627, end: 20160926
  2. DIOVAN [Concomitant]
     Active Substance: VALSARTAN
  3. OPSUMIT [Suspect]
     Active Substance: MACITENTAN
     Dosage: 5 MG, OD
     Route: 048
     Dates: start: 20160130, end: 20160626
  4. BAYASPIRIN [Concomitant]
     Active Substance: ASPIRIN
  5. TAKEPRON [Concomitant]
     Active Substance: LANSOPRAZOLE
  6. LUPRAC [Concomitant]
     Active Substance: TORSEMIDE
     Indication: PRODUCT USED FOR UNKNOWN INDICATION
  7. PREDONINE [Concomitant]
     Active Substance: PREDNISOLONE
  8. NIFEDIPINE. [Concomitant]
     Active Substance: NIFEDIPINE
  9. TACROLIMUS. [Concomitant]
     Active Substance: TACROLIMUS
  10. CELLCEPT [Concomitant]
     Active Substance: MYCOPHENOLATE MOFETIL\MYCOPHENOLATE MOFETIL HYDROCHLORIDE
  11. EDIROL [Concomitant]
     Active Substance: ELDECALCITOL

REACTIONS (3)
  - Systemic lupus erythematosus [Unknown]
  - Exposure during pregnancy [Unknown]
  - Abortion spontaneous [Unknown]

NARRATIVE: CASE EVENT DATE: 20160926
